FAERS Safety Report 9220537 (Version 6)
Quarter: 2015Q2

REPORT INFORMATION
  Report Type: Spontaneous
  Country: BR (occurrence: BR)
  Receive Date: 20130409
  Receipt Date: 20150413
  Transmission Date: 20150821
  Serious: Yes (Other)
  Sender: FDA-Public Use
  Company Number: BR-PFIZER INC-2013108461

PATIENT
  Age: 50 Year
  Sex: Female
  Weight: 63 kg

DRUGS (21)
  1. DEPAKENE [Concomitant]
     Active Substance: VALPROIC ACID
     Indication: DEPRESSION
     Dosage: 40 MG, AT NIGHT
     Route: 048
     Dates: start: 2005
  2. SERTRALINE HYDROCHLORIDE. [Concomitant]
     Active Substance: SERTRALINE HYDROCHLORIDE
     Indication: DEPRESSION
     Dosage: 2 TABLETS IN THE MORNING AND 2 TABLETS AT NIGHT
     Route: 048
     Dates: start: 2005
  3. NEULEPTIL [Concomitant]
     Active Substance: PERICIAZINE
     Indication: OBSESSIVE-COMPULSIVE DISORDER
  4. CHAMPIX [Suspect]
     Active Substance: VARENICLINE TARTRATE
     Dosage: 1 MG, 2X/DAY
     Route: 048
     Dates: start: 20100312, end: 20100512
  5. SERTRALINE HYDROCHLORIDE. [Concomitant]
     Active Substance: SERTRALINE HYDROCHLORIDE
     Indication: OBSESSIVE-COMPULSIVE DISORDER
  6. RIVOTRIL [Concomitant]
     Active Substance: CLONAZEPAM
     Indication: DEPRESSION
     Dosage: 2MG TWICE DAILY (ONE TABLET AT NIGHT AND ONE TABLET IN THE MORNING)
     Route: 048
     Dates: start: 2005
  7. CHAMPIX [Suspect]
     Active Substance: VARENICLINE TARTRATE
     Indication: SMOKING CESSATION THERAPY
     Dosage: 0.5 MG, 1X/DAY
     Route: 048
     Dates: start: 20100212, end: 201003
  8. CHAMPIX [Suspect]
     Active Substance: VARENICLINE TARTRATE
     Dosage: 0.5 MG, 2X/DAY
     Route: 048
     Dates: start: 20110804, end: 201108
  9. CHAMPIX [Suspect]
     Active Substance: VARENICLINE TARTRATE
     Dosage: 1 TABLET, DAILY
     Route: 048
     Dates: start: 20140101, end: 20140128
  10. RIVOTRIL [Concomitant]
     Active Substance: CLONAZEPAM
     Indication: OBSESSIVE-COMPULSIVE DISORDER
     Dosage: HALF TABLET IN THE MORNING, HALF TABLET IN THE AFTERNOON, 1 TABLET AT NIGHT
     Route: 048
  11. NEULEPTIL [Concomitant]
     Active Substance: PERICIAZINE
     Indication: SLEEP DISORDER
     Dosage: 10 DROPS BEFORE SLEEP
     Dates: start: 2005
  12. ALENIA [Concomitant]
     Active Substance: BUDESONIDE\FORMOTEROL FUMARATE
     Indication: LUNG DISORDER
     Dosage: 1 PUFF, 2X/DAY
     Route: 055
  13. DEPAKENE [Concomitant]
     Active Substance: VALPROIC ACID
     Indication: OBSESSIVE-COMPULSIVE DISORDER
  14. DEPAKENE [Concomitant]
     Active Substance: VALPROIC ACID
     Indication: SLEEP DISORDER
  15. CHAMPIX [Suspect]
     Active Substance: VARENICLINE TARTRATE
     Dosage: 1 MG, EVERY 12 HOURS
     Route: 048
     Dates: start: 20100706, end: 2010
  16. CHAMPIX [Suspect]
     Active Substance: VARENICLINE TARTRATE
     Dosage: UNK
     Route: 048
     Dates: start: 201105, end: 2011
  17. NEULEPTIL [Concomitant]
     Active Substance: PERICIAZINE
     Indication: DEPRESSION
  18. CHAMPIX [Suspect]
     Active Substance: VARENICLINE TARTRATE
     Dosage: UNK
     Route: 048
     Dates: start: 20130105, end: 20130329
  19. SPIRIVA [Concomitant]
     Active Substance: TIOTROPIUM BROMIDE MONOHYDRATE
     Indication: LUNG DISORDER
     Dosage: 1 PUFF, 1X/DAY
     Route: 055
  20. CHAMPIX [Suspect]
     Active Substance: VARENICLINE TARTRATE
     Dosage: 1 MG, 2X/DAY
     Route: 048
     Dates: start: 201108, end: 201111
  21. SERTRALINE HYDROCHLORIDE. [Concomitant]
     Active Substance: SERTRALINE HYDROCHLORIDE
     Indication: ANTIDEPRESSANT THERAPY

REACTIONS (25)
  - Depression [Recovered/Resolved]
  - Heart rate increased [Recovered/Resolved]
  - Treatment noncompliance [Recovered/Resolved]
  - Crying [Recovered/Resolved]
  - Weight decreased [Unknown]
  - Suicidal ideation [Recovered/Resolved]
  - Withdrawal syndrome [Recovered/Resolved]
  - Feeling abnormal [Recovered/Resolved]
  - Feeling guilty [Recovered/Resolved]
  - Dysgeusia [Recovered/Resolved]
  - Depressed mood [Recovered/Resolved]
  - Abnormal behaviour [Recovered/Resolved]
  - Abnormal dreams [Recovered/Resolved]
  - Psychiatric symptom [Recovered/Resolved]
  - Dizziness [Recovered/Resolved]
  - Tremor [Recovered/Resolved]
  - Nausea [Recovered/Resolved]
  - Gastritis [Recovered/Resolved]
  - Emphysema [Recovered/Resolved]
  - Tobacco user [Recovered/Resolved]
  - Fear [Recovered/Resolved]
  - Decreased appetite [Recovered/Resolved]
  - Peripheral coldness [Recovered/Resolved]
  - Nervousness [Recovered/Resolved]
  - Weight increased [Recovered/Resolved]

NARRATIVE: CASE EVENT DATE: 2010
